FAERS Safety Report 7199453-8 (Version None)
Quarter: 2011Q1

REPORT INFORMATION
  Report Type: 
  Country: None (occurrence: None)
  Receive Date: 20101228
  Receipt Date: 20101217
  Transmission Date: 20110831
  Serious: Yes (Hospitalization)
  Sender: FDA-Public Use
  Company Number: JP-JNJFOC-20101205299

PATIENT
  Sex: Male

DRUGS (29)
  1. LOXONIN [Suspect]
     Indication: ANALGESIC THERAPY
     Route: 048
  2. REBAMIPIDE [Concomitant]
     Indication: GASTRITIS
     Dosage: AS-NEEDED BASIS
     Route: 048
  3. LENDORMIN D [Concomitant]
     Indication: INSOMNIA
     Dosage: AS-NEEDED BASIS
     Route: 048
  4. LEVOFLOXACIN [Suspect]
     Indication: INFECTION
     Route: 048
  5. LEVOFLOXACIN [Suspect]
     Route: 048
  6. LOXONIN [Suspect]
     Route: 048
  7. FLOMOX [Suspect]
     Indication: PRODUCT USED FOR UNKNOWN INDICATION
     Dosage: AS-NEEDED BASIS
     Route: 065
  8. LOXONIN [Suspect]
     Dosage: AS-NEEDED BASIS
     Route: 048
  9. CEFDINIR [Suspect]
     Indication: PRODUCT USED FOR UNKNOWN INDICATION
     Dosage: AS-NEEDED BASIS
     Route: 065
  10. DASEN [Concomitant]
     Indication: UPPER RESPIRATORY TRACT INFLAMMATION
     Dosage: AS-NEEDED BASIS
     Route: 048
  11. LEVOFLOXACIN [Suspect]
     Route: 048
  12. KAKKON-TO [Suspect]
     Indication: NASOPHARYNGITIS
     Dosage: AS-NEEDED BASIS
     Route: 065
  13. CELTECT [Concomitant]
     Indication: RHINITIS ALLERGIC
     Dosage: AS-NEEDED BASIS
     Route: 048
  14. DAIO-KANZO-TO [Concomitant]
     Indication: CONSTIPATION
     Dosage: AS-NEEDED BASIS
     Route: 048
  15. THYRADIN S [Concomitant]
     Indication: HYPOTHYROIDISM
     Dosage: AS-NEEDED BASIS
     Route: 048
  16. MUCODYNE [Concomitant]
     Indication: UPPER RESPIRATORY TRACT INFLAMMATION
     Dosage: AS-NEEDED BASIS
     Route: 048
  17. LOXONIN [Suspect]
     Indication: PYREXIA
     Route: 048
  18. NESP [Concomitant]
     Indication: RENAL FAILURE CHRONIC
     Dosage: AS-NEEDED BASIS
     Route: 042
  19. LEVOFLOXACIN [Suspect]
     Route: 048
  20. LOXONIN [Suspect]
     Indication: TOOTHACHE
     Dosage: AS-NEEDED BASIS
     Route: 048
  21. FLOMOX [Suspect]
     Route: 065
  22. ALTAT [Concomitant]
     Indication: GASTRITIS
     Dosage: AS-NEEDED BASIS
     Route: 048
  23. SENNOSIDE [Concomitant]
     Indication: CONSTIPATION
     Dosage: AS-NEEDED BASIS
     Route: 048
  24. LEVOFLOXACIN [Suspect]
     Route: 048
  25. LEVOFLOXACIN [Suspect]
     Route: 048
  26. LEVOFLOXACIN [Suspect]
     Route: 048
  27. LOXONIN [Suspect]
     Dosage: AS-NEEDED BASIS
     Route: 048
  28. LEVOFLOXACIN [Suspect]
     Route: 048
  29. CALCIUM LACTATE [Concomitant]
     Indication: HYPOCALCAEMIA
     Dosage: AS-NEEDED BASIS
     Route: 048

REACTIONS (3)
  - WHITE BLOOD CELL COUNT INCREASED [None]
  - ASTHMA [None]
  - EOSINOPHILIA [None]
